FAERS Safety Report 22970467 (Version 2)
Quarter: 2023Q4

REPORT INFORMATION
  Report Type: Spontaneous
  Country: BR (occurrence: BR)
  Receive Date: 20230922
  Receipt Date: 20231107
  Transmission Date: 20240109
  Serious: No
  Sender: FDA-Public Use
  Company Number: BR-JNJFOC-20230933897

PATIENT

DRUGS (2)
  1. STELARA [Suspect]
     Active Substance: USTEKINUMAB
     Indication: Product used for unknown indication
     Dosage: STRENGTH: 45.00 MG / 0.50 ML
     Route: 058
  2. STELARA [Suspect]
     Active Substance: USTEKINUMAB

REACTIONS (1)
  - Device issue [Unknown]
